FAERS Safety Report 6210966-5 (Version None)
Quarter: 2009Q2

REPORT INFORMATION
  Report Type: 
  Country: None (occurrence: None)
  Receive Date: 20090528
  Receipt Date: 20090528
  Transmission Date: 20091009
  Serious: Yes (Other)
  Sender: FDA-Public Use
  Company Number: None

PATIENT
  Age: 56 Year
  Sex: Female
  Weight: 85.2762 kg

DRUGS (1)
  1. ARIMIDEX [Suspect]
     Indication: BREAST CANCER
     Dosage: 1 TABLET DAILY PO
     Route: 048
     Dates: start: 20080801, end: 20090221

REACTIONS (3)
  - BREAST CANCER RECURRENT [None]
  - HOT FLUSH [None]
  - PAIN [None]
